FAERS Safety Report 12722184 (Version 2)
Quarter: 2016Q3

REPORT INFORMATION
  Report Type: Spontaneous
  Country: CA (occurrence: CA)
  Receive Date: 20160907
  Receipt Date: 20160916
  Transmission Date: 20161109
  Serious: Yes (Other)
  Sender: FDA-Public Use
  Company Number: CA-PFIZER INC-2016420460

PATIENT
  Age: 67 Year
  Sex: Female
  Weight: 61.5 kg

DRUGS (21)
  1. WARFARIN [Concomitant]
     Active Substance: WARFARIN
     Dosage: UNK
  2. ADVAIR HFA [Concomitant]
     Active Substance: FLUTICASONE PROPIONATE\SALMETEROL XINAFOATE
     Dosage: UNK
  3. FUROSEMIDE. [Concomitant]
     Active Substance: FUROSEMIDE
     Dosage: 100 MG, 2X/DAY
  4. DIOVAN [Concomitant]
     Active Substance: VALSARTAN
     Dosage: 80 (UNITS NOT PROVIDED)
  5. REVATIO [Suspect]
     Active Substance: SILDENAFIL CITRATE
     Indication: PULMONARY HYPERTENSION
     Dosage: ATTEMPT TO SWITCH TO ADCIRCA
     Dates: start: 201104
  6. SPIRIVA [Concomitant]
     Active Substance: TIOTROPIUM BROMIDE MONOHYDRATE
     Dosage: 18 UG, UNK
  7. ATORVASTATIN [Concomitant]
     Active Substance: ATORVASTATIN
     Dosage: 20 MG, DAILY
  8. TRAZODONE [Concomitant]
     Active Substance: TRAZODONE HYDROCHLORIDE
     Dosage: UNK
  9. IRON [Concomitant]
     Active Substance: IRON
     Dosage: UNK
  10. VITAMIN D /00107901/ [Concomitant]
     Active Substance: ERGOCALCIFEROL
     Dosage: UNK
     Route: 058
  11. REVATIO [Suspect]
     Active Substance: SILDENAFIL CITRATE
     Dosage: RE-STARTED
  12. ALLOPURINOL. [Concomitant]
     Active Substance: ALLOPURINOL
     Dosage: 100 MG, DAILY
  13. SPIRONOLACTONE. [Concomitant]
     Active Substance: SPIRONOLACTONE
     Dosage: UNK
  14. APO-K [Concomitant]
     Active Substance: POTASSIUM CHLORIDE
     Dosage: UNK
  15. METOLAZONE. [Concomitant]
     Active Substance: METOLAZONE
     Dosage: 2.5 MG, EVERY 3 DAYS
  16. MULTIVITAMIN /02160401/ [Concomitant]
     Active Substance: VITAMINS
     Dosage: UNK
  17. TYLENOL [Concomitant]
     Active Substance: ACETAMINOPHEN
     Dosage: UNK
  18. SENOKOT [Concomitant]
     Active Substance: SENNOSIDES
     Dosage: UNK
  19. RABEPRAZOLE [Concomitant]
     Active Substance: RABEPRAZOLE
  20. WELLBUTRIN [Concomitant]
     Active Substance: BUPROPION HYDROCHLORIDE
     Indication: DEPRESSION
     Dosage: 10 MG, 2X/DAY
  21. CONJUGATED ESTROGENS [Concomitant]
     Active Substance: ESTROGENS, CONJUGATED
     Dosage: UNK

REACTIONS (2)
  - Pulmonary hypertension [Unknown]
  - Disease progression [Unknown]

NARRATIVE: CASE EVENT DATE: 201311
